FAERS Safety Report 7273916-9 (Version None)
Quarter: 2011Q1

REPORT INFORMATION
  Report Type: 
  Country: None (occurrence: None)
  Receive Date: 20110203
  Receipt Date: 20110120
  Transmission Date: 20110831
  Serious: Yes (Hospitalization, Other)
  Sender: FDA-Public Use
  Company Number: DE-GENENTECH-312004

PATIENT
  Sex: Male
  Weight: 90 kg

DRUGS (8)
  1. FLUDARA [Suspect]
     Indication: LYMPHOPLASMACYTOID LYMPHOMA/IMMUNOCYTOMA
     Dosage: 38 MG, UNK
     Route: 042
     Dates: start: 20090919, end: 20091029
  2. MESNA [Concomitant]
     Indication: PRODUCT USED FOR UNKNOWN INDICATION
     Dosage: 8 MG, UNK
     Route: 042
     Dates: start: 20090916, end: 20091029
  3. ONDANSETRON [Concomitant]
     Indication: PRODUCT USED FOR UNKNOWN INDICATION
     Dosage: 8 MG, UNK
     Route: 042
     Dates: start: 20090916, end: 20091029
  4. MABTHERA [Suspect]
     Indication: LYMPHOPLASMACYTOID LYMPHOMA/IMMUNOCYTOMA
     Dosage: 750 MG, UNK
     Route: 042
     Dates: start: 20090916, end: 20091029
  5. CYCLOPHOSPHAMIDE [Suspect]
     Indication: LYMPHOPLASMACYTOID LYMPHOMA/IMMUNOCYTOMA
     Dosage: 375 MG, UNK
     Route: 042
     Dates: start: 20090916, end: 20091029
  6. FENISTIL [Concomitant]
     Indication: PRODUCT USED FOR UNKNOWN INDICATION
     Dosage: 1 UNK, UNK
     Route: 042
     Dates: start: 20090916, end: 20091029
  7. DEXAMETHASONE [Concomitant]
     Indication: PRODUCT USED FOR UNKNOWN INDICATION
     Dosage: 8 MG, UNK
     Route: 042
     Dates: start: 20090916, end: 20091029
  8. PREDNISOLONE [Concomitant]
     Indication: PRODUCT USED FOR UNKNOWN INDICATION
     Dosage: 100 MG, UNK
     Dates: start: 20090916, end: 20091029

REACTIONS (4)
  - PANCYTOPENIA [None]
  - PROGRESSIVE MULTIFOCAL LEUKOENCEPHALOPATHY [None]
  - BONE MARROW TOXICITY [None]
  - MYELODYSPLASTIC SYNDROME [None]
